FAERS Safety Report 26179145 (Version 2)
Quarter: 2025Q4

REPORT INFORMATION
  Report Type: Spontaneous
  Country: EU (occurrence: EU)
  Receive Date: 20251219
  Receipt Date: 20251230
  Transmission Date: 20260118
  Serious: Yes (Hospitalization, Disabling, Other)
  Sender: AUROBINDO
  Company Number: EU-PHARMAS-2025-5713

PATIENT
  Age: 55 Year
  Sex: Male

DRUGS (10)
  1. MELPHALAN [Suspect]
     Active Substance: MELPHALAN
     Indication: Product used for unknown indication
     Dosage: UNK
     Route: 065
  2. BENDAMUSTINE [Suspect]
     Active Substance: BENDAMUSTINE
     Indication: Product used for unknown indication
     Dosage: 160 MG/M2
     Route: 065
  3. ETOPOSIDE [Suspect]
     Active Substance: ETOPOSIDE
     Indication: Product used for unknown indication
     Dosage: UNK
     Route: 065
  4. CYTARABINE [Suspect]
     Active Substance: CYTARABINE
     Indication: Product used for unknown indication
     Dosage: UNK
     Route: 065
  5. CEFEPIME [Concomitant]
     Active Substance: CEFEPIME HYDROCHLORIDE
     Indication: Evidence based treatment
     Dosage: UNK
     Route: 065
  6. METRONIDAZOLE [Concomitant]
     Active Substance: METRONIDAZOLE
     Indication: Evidence based treatment
     Dosage: UNK
     Route: 065
  7. LEVOFLOXACIN [Concomitant]
     Active Substance: LEVOFLOXACIN
     Indication: Evidence based treatment
     Dosage: UNK
     Route: 065
  8. LINEZOLID [Concomitant]
     Active Substance: LINEZOLID
     Indication: Evidence based treatment
     Dosage: UNK
     Route: 065
  9. OSELTAMIVIR [Concomitant]
     Active Substance: OSELTAMIVIR
     Indication: Influenza
     Dosage: UNK
     Route: 065
  10. CMV immunoglobulins [Concomitant]
     Indication: Hepatitis
     Dosage: UNK ( 100 U/KG WEEKLY)
     Route: 065

REACTIONS (5)
  - Clostridium difficile colitis [Recovering/Resolving]
  - Hepatitis [Recovering/Resolving]
  - Febrile neutropenia [Recovered/Resolved]
  - Cytomegalovirus infection [Recovered/Resolved]
  - Abdominal pain [Recovered/Resolved]
